FAERS Safety Report 7198445-2 (Version None)
Quarter: 2010Q4

REPORT INFORMATION
  Report Type: 
  Country: None (occurrence: None)
  Receive Date: 20101227
  Receipt Date: 20101215
  Transmission Date: 20110411
  Serious: Yes (Other)
  Sender: FDA-Public Use
  Company Number: PHHY2010CA86064

PATIENT

DRUGS (3)
  1. RASILEZ [Suspect]
     Dosage: 150 MG
  2. ANGIOTENSIN II ANTAGONISTS [Concomitant]
  3. ANTIHYPERTENSIVE DRUGS [Concomitant]

REACTIONS (1)
  - BLOOD PRESSURE INCREASED [None]
